FAERS Safety Report 7318646-X (Version None)
Quarter: 2011Q1

REPORT INFORMATION
  Report Type: 
  Country: None (occurrence: None)
  Receive Date: 20110228
  Receipt Date: 20110215
  Transmission Date: 20110831
  Serious: Yes (Other)
  Sender: FDA-Public Use
  Company Number: US-JNJFOC-20110205638

PATIENT

DRUGS (2)
  1. STELARA [Suspect]
     Indication: PSORIASIS
     Route: 058
  2. RAPTIVA [Concomitant]
     Indication: PSORIASIS

REACTIONS (3)
  - BLOOD GLUCOSE INCREASED [None]
  - GLUCOSE URINE PRESENT [None]
  - BLOOD CHOLESTEROL INCREASED [None]
